FAERS Safety Report 9604606 (Version 2)
Quarter: 2013Q4

REPORT INFORMATION
  Report Type: Spontaneous
  Country: FR (occurrence: FR)
  Receive Date: 20131008
  Receipt Date: 20131105
  Transmission Date: 20140711
  Serious: Yes (Hospitalization, Other)
  Sender: FDA-Public Use
  Company Number: FR-PFIZER INC-2013281683

PATIENT
  Age: 34 Year
  Sex: Female

DRUGS (6)
  1. EFFEXOR LP [Suspect]
     Dosage: 150 MG, DAILY
     Route: 048
     Dates: start: 20121203
  2. ATARAX [Suspect]
     Dosage: 25 MG, DAILY
     Dates: start: 20121203
  3. KARDEGIC [Suspect]
     Dosage: 160 MG, DAILY
     Dates: start: 20121012
  4. SERESTA [Suspect]
     Dosage: UNK
     Dates: start: 20121203
  5. GAVISCON [Concomitant]
     Dosage: UNK
     Dates: start: 20130215
  6. TRANSIPEG [Concomitant]
     Dosage: 2.95 G, UNK
     Dates: start: 20130215

REACTIONS (2)
  - Third stage postpartum haemorrhage [Recovered/Resolved]
  - Arrested labour [Recovered/Resolved]
